FAERS Safety Report 24152013 (Version 1)
Quarter: 2024Q3

REPORT INFORMATION
  Report Type: Spontaneous
  Country: CN (occurrence: CN)
  Receive Date: 20240730
  Receipt Date: 20240730
  Transmission Date: 20241017
  Serious: Yes (Hospitalization, Other)
  Sender: ROCHE
  Company Number: CN-ROCHE-10000032015

PATIENT
  Age: 58 Year
  Sex: Male

DRUGS (5)
  1. ATEZOLIZUMAB [Suspect]
     Active Substance: ATEZOLIZUMAB
     Indication: Small cell lung cancer extensive stage
     Route: 042
     Dates: start: 201911
  2. CARBOPLATIN [Concomitant]
     Active Substance: CARBOPLATIN
     Indication: Small cell lung cancer extensive stage
     Route: 042
     Dates: start: 201911
  3. CARBOPLATIN [Concomitant]
     Active Substance: CARBOPLATIN
     Route: 042
  4. ETOPOSIDE [Concomitant]
     Active Substance: ETOPOSIDE
     Indication: Small cell lung cancer extensive stage
     Dosage: DAILY ON DAY 1-3 OF 21-DAY CYCLE
     Route: 048
     Dates: start: 201911
  5. ETOPOSIDE [Concomitant]
     Active Substance: ETOPOSIDE
     Dosage: DAILY ON DAY 1-3 OF 21-DAY CYCLE
     Route: 048

REACTIONS (15)
  - Febrile neutropenia [Unknown]
  - Fatigue [Unknown]
  - Appetite disorder [Unknown]
  - Osteonecrosis of jaw [Unknown]
  - Hypercalcaemia [Unknown]
  - Odynophagia [Unknown]
  - Anaemia [Unknown]
  - Decreased appetite [Unknown]
  - Dysgeusia [Unknown]
  - Small cell lung cancer recurrent [Unknown]
  - Dyspnoea [Unknown]
  - Disease progression [Unknown]
  - Hypertransaminasaemia [Recovered/Resolved]
  - Gamma-glutamyltransferase increased [Unknown]
  - Blood alkaline phosphatase increased [Unknown]
